FAERS Safety Report 9163805 (Version 1)
Quarter: 2013Q1

REPORT INFORMATION
  Report Type: Spontaneous
  Country: CH (occurrence: CH)
  Receive Date: 20130314
  Receipt Date: 20130314
  Transmission Date: 20140127
  Serious: Yes (Hospitalization, Disabling)
  Sender: FDA-Public Use
  Company Number: CH-ASTRAZENECA-2013SE15529

PATIENT
  Age: 46 Year
  Sex: Male
  Weight: 76 kg

DRUGS (22)
  1. NEXIUM [Suspect]
     Indication: DUODENAL ULCER
     Route: 048
     Dates: start: 20130122, end: 20130206
  2. NEXIUM [Suspect]
     Indication: DUODENAL ULCER
     Route: 048
     Dates: start: 20130126
  3. NEXIUM [Suspect]
     Indication: DUODENAL ULCER
     Route: 048
     Dates: start: 20130202, end: 20130206
  4. NEXIUM IV [Suspect]
     Indication: DUODENAL ULCER
     Route: 042
     Dates: start: 20130123, end: 20130126
  5. OMEZOL-MEPHA [Suspect]
     Indication: DUODENAL ULCER
     Route: 048
     Dates: start: 20130207, end: 20130214
  6. DAFALGAN [Suspect]
     Route: 048
     Dates: start: 20130110
  7. DAFALGAN [Suspect]
     Route: 048
     Dates: start: 20130110, end: 20130112
  8. DAFALGAN [Suspect]
     Route: 048
     Dates: start: 20130214
  9. DAFALGAN [Suspect]
     Dosage: 1G 3X/DAY IN RESERVE
     Route: 048
     Dates: start: 20130216
  10. DAFALGAN [Suspect]
     Dosage: 500 MG 1-2X/DAY
     Route: 048
     Dates: start: 20130218
  11. FLAGYL [Suspect]
     Indication: DUODENAL ULCER
     Route: 048
     Dates: start: 20130207, end: 20130214
  12. KLACID [Suspect]
     Indication: DUODENAL ULCER
     Route: 048
     Dates: start: 20130207, end: 20130214
  13. MABTHERA [Suspect]
     Indication: HAEMOLYTIC URAEMIC SYNDROME
     Dosage: 700 MG ON 29 JANUARY AND 7 FEBRUARY, THIRD DOSE ON 14 FEBRUARY
     Route: 041
     Dates: start: 20130129, end: 20130214
  14. TOPLEXIL ZUCKERFREI [Concomitant]
     Indication: COUGH
     Dosage: TOTAL OF 10 ML, ON THREE OCCASIONS
     Route: 048
     Dates: start: 20130131, end: 20130206
  15. TOPLEXIL ZUCKERFREI [Concomitant]
     Indication: COUGH
     Dosage: TOTAL OF 10 ML, ON THREE OCCASIONS
     Route: 048
     Dates: start: 20130131, end: 20130206
  16. PREDNISON STREULI [Concomitant]
     Indication: HAEMOLYTIC URAEMIC SYNDROME
     Route: 048
     Dates: start: 20130122, end: 20130217
  17. METHYLPREDNISOLONE [Concomitant]
     Route: 042
     Dates: start: 20130217
  18. ACIDUM FOLICUM HAENSELER [Concomitant]
     Route: 048
     Dates: start: 20130122
  19. AMLODIPINE MESILATE [Concomitant]
     Route: 048
     Dates: start: 20130123, end: 20130124
  20. PANTOPRAZOLE MEPHA [Concomitant]
     Dosage: 20 MG, 1 TOTAL
     Route: 048
     Dates: start: 20130111, end: 20130111
  21. MOTILIUM [Concomitant]
     Indication: NAUSEA
     Dosage: TOTAL OF 3 TABLETS
     Route: 060
     Dates: start: 20130111, end: 20130112
  22. MOTILIUM [Concomitant]
     Indication: VOMITING
     Dosage: TOTAL OF 3 TABLETS
     Route: 060
     Dates: start: 20130111, end: 20130112

REACTIONS (6)
  - Conjunctivitis [Not Recovered/Not Resolved]
  - Wheezing [Unknown]
  - Toxic epidermal necrolysis [Unknown]
  - Toxic epidermal necrolysis [Not Recovered/Not Resolved]
  - Periorbital oedema [Not Recovered/Not Resolved]
  - Aphthous stomatitis [Not Recovered/Not Resolved]
